FAERS Safety Report 17803406 (Version 1)
Quarter: 2020Q2

REPORT INFORMATION
  Report Type: Spontaneous
  Country: US (occurrence: US)
  Receive Date: 20200519
  Receipt Date: 20200519
  Transmission Date: 20200714
  Serious: No
  Sender: FDA-Public Use
  Company Number: US-CMP PHARMA-2020CMP00006

PATIENT
  Age: 20 Month
  Sex: Female

DRUGS (2)
  1. CAROSPIR [Suspect]
     Active Substance: SPIRONOLACTONE
     Indication: ASCITES
     Dosage: 15 MG, 1X/DAY
     Dates: start: 2019
  2. CAROSPIR [Suspect]
     Active Substance: SPIRONOLACTONE
     Indication: PORTAL HYPERTENSION

REACTIONS (3)
  - Off label use [Not Recovered/Not Resolved]
  - Dry skin [Not Recovered/Not Resolved]
  - Product administered to patient of inappropriate age [Not Recovered/Not Resolved]

NARRATIVE: CASE EVENT DATE: 2019
